FAERS Safety Report 7496385-2 (Version None)
Quarter: 2011Q2

REPORT INFORMATION
  Report Type: 
  Country: None (occurrence: None)
  Receive Date: 20110513
  Receipt Date: 20110509
  Transmission Date: 20111010
  Serious: Yes (Death, Hospitalization, Disabling)
  Sender: FDA-Public Use
  Company Number: AE-511-144 (PFIZER 2011047314)

PATIENT
  Age: 49 Year
  Sex: Female
  Weight: 50.8029 kg

DRUGS (14)
  1. LIDODERM [Suspect]
     Dates: start: 20100814
  2. OXYQUINOLINE SULFATE [Suspect]
  3. DILAUDID [Suspect]
     Dosage: 0.5MG
     Dates: start: 20100814
  4. XYLOCAINE [Suspect]
     Dates: start: 20100814
  5. TOTAL PARENTERAL NUTRITION (SODIUM CHLORIDE, CALCIUM CHLORIDE, POTASSI [Concomitant]
  6. ZOSYN [Suspect]
     Dates: start: 20100801, end: 20100815
  7. ATROPINE [Concomitant]
  8. LEVAQUIN [Suspect]
     Dates: start: 20100814
  9. MORPHINE HCL ELIXIR [Suspect]
  10. LACTULOSE [Concomitant]
  11. REGLAN [Suspect]
  12. NORCO [Suspect]
     Dates: start: 20100814
  13. AQUATEAR (POLYVINYL ALCOHOL AND BENZALKONIUM CHLORIDE) [Concomitant]
  14. POLYVINYL ALCOHOL [Concomitant]

REACTIONS (20)
  - BEDRIDDEN [None]
  - LUNG DISORDER [None]
  - BACK PAIN [None]
  - MUSCULAR WEAKNESS [None]
  - TOXICITY TO VARIOUS AGENTS [None]
  - DRUG HYPERSENSITIVITY [None]
  - GRIEF REACTION [None]
  - VAGINAL HAEMORRHAGE [None]
  - WEIGHT DECREASED [None]
  - PULMONARY EMBOLISM [None]
  - CENTRAL NERVOUS SYSTEM LESION [None]
  - JAUNDICE [None]
  - ABDOMINAL DISTENSION [None]
  - OEDEMA PERIPHERAL [None]
  - OEDEMA [None]
  - URINARY TRACT INFECTION [None]
  - GENERAL PHYSICAL HEALTH DETERIORATION [None]
  - VIRAL INFECTION [None]
  - PNEUMONIA [None]
  - CONTUSION [None]
